FAERS Safety Report 23752578 (Version 2)
Quarter: 2025Q2

REPORT INFORMATION
  Report Type: Spontaneous
  Country: AT (occurrence: AT)
  Receive Date: 20240417
  Receipt Date: 20250407
  Transmission Date: 20250717
  Serious: Yes (Hospitalization)
  Sender: MYLAN
  Company Number: AT-DSJP-DSJ-2024-113753

PATIENT
  Age: 66 Year
  Sex: Female
  Weight: 50 kg

DRUGS (2)
  1. TRANEXAMIC ACID [Suspect]
     Active Substance: TRANEXAMIC ACID
     Indication: Gastrointestinal haemorrhage
     Dosage: 1.5 GRAM, QD (AS AN ATTEMPT TO MANAGE GASTROINTESTINAL BLEEDING ALTHOUGH NOT PRIMARILY)
  2. SOMATOSTATIN [Suspect]
     Active Substance: SOMATOSTATIN
     Indication: Gastrointestinal haemorrhage

REACTIONS (2)
  - Therapy non-responder [Unknown]
  - Off label use [Unknown]
